FAERS Safety Report 7484000-3 (Version None)
Quarter: 2011Q1

REPORT INFORMATION
  Report Type: 
  Country: None (occurrence: None)
  Receive Date: 20110309
  Receipt Date: 20110125
  Transmission Date: 20110831
  Serious: No
  Sender: FDA-Public Use
  Company Number: 2011SP003708

PATIENT
  Age: 43 Year
  Sex: Male

DRUGS (5)
  1. ROZEREM [Concomitant]
  2. SAPHRIS [Suspect]
     Indication: BIPOLAR DISORDER
     Dosage: 5 MG;BID;SL
     Route: 060
     Dates: start: 20110101, end: 20110101
  3. SAPHRIS [Suspect]
     Indication: DEPRESSION
     Dosage: 5 MG;BID;SL
     Route: 060
     Dates: start: 20110101, end: 20110101
  4. LAMICTAL [Concomitant]
  5. KLONOPIN [Concomitant]

REACTIONS (4)
  - FEELING ABNORMAL [None]
  - DIZZINESS [None]
  - DYSARTHRIA [None]
  - VISION BLURRED [None]
